FAERS Safety Report 10073384 (Version 1)
Quarter: 2014Q2

REPORT INFORMATION
  Report Type: Spontaneous
  Country: US (occurrence: US)
  Receive Date: 20140411
  Receipt Date: 20140411
  Transmission Date: 20141212
  Serious: No
  Sender: FDA-Public Use
  Company Number: US-GILEAD-2014-0099290

PATIENT
  Age: 74 Year
  Sex: Female

DRUGS (2)
  1. LETAIRIS [Suspect]
     Indication: PULMONARY ARTERIAL HYPERTENSION
     Dosage: 5 MG, QD
     Route: 065
     Dates: start: 20140114
  2. LETAIRIS [Suspect]
     Indication: GASTRIC ULCER
     Dosage: 10 MG, QD
     Route: 065
     Dates: end: 20140313

REACTIONS (1)
  - Anaemia [Unknown]
